FAERS Safety Report 14598138 (Version 1)
Quarter: 2018Q1

REPORT INFORMATION
  Report Type: Report from Study
  Country: None (occurrence: BR)
  Receive Date: 20180305
  Receipt Date: 20180305
  Transmission Date: 20180509
  Serious: Yes (Other)
  Sender: FDA-Public Use
  Company Number: BR-ABBVIE-18K-020-2273296-00

PATIENT
  Age: 63 Year
  Sex: Male
  Weight: 74 kg

DRUGS (4)
  1. HUMIRA [Suspect]
     Active Substance: ADALIMUMAB
     Indication: ANKYLOSING SPONDYLITIS
     Route: 058
     Dates: start: 20160628
  2. MESALAZINE [Concomitant]
     Active Substance: MESALAMINE
     Indication: DIVERTICULITIS
  3. MESALAZINE [Concomitant]
     Active Substance: MESALAMINE
     Indication: COLITIS
  4. HUMIRA [Suspect]
     Active Substance: ADALIMUMAB
     Route: 058

REACTIONS (5)
  - Hepatic mass [Not Recovered/Not Resolved]
  - Fear [Unknown]
  - Renal mass [Not Recovered/Not Resolved]
  - Hepatic neoplasm [Unknown]
  - Renal neoplasm [Unknown]

NARRATIVE: CASE EVENT DATE: 201708
